FAERS Safety Report 5675768-7 (Version None)
Quarter: 2008Q1

REPORT INFORMATION
  Report Type: 
  Country: None (occurrence: None)
  Receive Date: 20080318
  Receipt Date: 20080305
  Transmission Date: 20080703
  Serious: Yes (Hospitalization)
  Sender: FDA-Public Use
  Company Number: 2008005578

PATIENT
  Age: 17 Year
  Sex: Male

DRUGS (1)
  1. BENADRYL [Suspect]
     Dosage: 90 PILLS OVERNIGHT, ORAL
     Route: 048
     Dates: start: 20080304, end: 20080304

REACTIONS (1)
  - INCORRECT DOSE ADMINISTERED [None]
